FAERS Safety Report 8824841 (Version 2)
Quarter: 2012Q4

REPORT INFORMATION
  Report Type: Report from Study
  Country: US (occurrence: US)
  Receive Date: 20121004
  Receipt Date: 20121107
  Transmission Date: 20130627
  Serious: Yes (Other)
  Sender: FDA-Public Use
  Company Number: US-US-EMD SERONO, INC.-7164506

PATIENT
  Age: 47 Year
  Sex: Female
  Weight: 64 kg

DRUGS (4)
  1. REBIF [Suspect]
     Indication: MULTIPLE SCLEROSIS
     Route: 058
     Dates: start: 20030609
  2. AZATHIOPRINE [Suspect]
     Indication: PRODUCT USED FOR UNKNOWN INDICATION
  3. AMPYRA [Concomitant]
     Indication: MULTIPLE SCLEROSIS
  4. LISINOPRIL [Concomitant]
     Indication: HYPERTENSION

REACTIONS (9)
  - Mastitis [Recovered/Resolved]
  - Vasculitis [Unknown]
  - Uveitis [Unknown]
  - Injection site fibrosis [Not Recovered/Not Resolved]
  - Multiple sclerosis relapse [Recovering/Resolving]
  - Injection site pain [Recovering/Resolving]
  - Injection site erythema [Recovering/Resolving]
  - Pyrexia [Unknown]
  - Myalgia [Unknown]
